FAERS Safety Report 6125949-3 (Version None)
Quarter: 2009Q1

REPORT INFORMATION
  Report Type: 
  Country: None (occurrence: None)
  Receive Date: 20090320
  Receipt Date: 20090316
  Transmission Date: 20090719
  Serious: Yes (Other)
  Sender: FDA-Public Use
  Company Number: PHHY2009DE09937

PATIENT
  Sex: Female

DRUGS (3)
  1. RASILEZ [Suspect]
     Indication: HYPERTENSION
     Dosage: 1 DF, QD
     Dates: start: 20080301, end: 20090301
  2. RASILEZ [Suspect]
     Dosage: 1 DF, QD
     Dates: start: 20080501, end: 20080501
  3. ANTIHYPERTENSIVE DRUGS [Concomitant]
     Indication: HYPERTENSION
     Dosage: UNK

REACTIONS (3)
  - ATRIAL FIBRILLATION [None]
  - HEART RATE INCREASED [None]
  - TACHYARRHYTHMIA [None]
